FAERS Safety Report 6752993-5 (Version None)
Quarter: 2010Q2

REPORT INFORMATION
  Report Type: 
  Country: None (occurrence: None)
  Receive Date: 20100602
  Receipt Date: 20100602
  Transmission Date: 20101027
  Serious: Yes (Hospitalization, Other)
  Sender: FDA-Public Use
  Company Number: None

PATIENT
  Sex: Female
  Weight: 66.6788 kg

DRUGS (1)
  1. DYNACIRC [Suspect]
     Indication: HYPERTENSION
     Dosage: 1 PILL 1 A DAY
     Dates: start: 20100403

REACTIONS (4)
  - BLOOD PRESSURE DIASTOLIC DECREASED [None]
  - FEELING ABNORMAL [None]
  - SPEECH DISORDER [None]
  - UNEVALUABLE EVENT [None]
